FAERS Safety Report 9325786 (Version 1)
Quarter: 2013Q2

REPORT INFORMATION
  Report Type: Report from Study
  Country: CA (occurrence: CA)
  Receive Date: 20130604
  Receipt Date: 20130604
  Transmission Date: 20140414
  Serious: Yes (Life-Threatening, Hospitalization)
  Sender: FDA-Public Use
  Company Number: CA-JNJFOC-20130416160

PATIENT
  Sex: Male
  Weight: 101.9 kg

DRUGS (1)
  1. REMICADE [Suspect]
     Indication: CROHN^S DISEASE
     Route: 042
     Dates: start: 20100413

REACTIONS (3)
  - Neoplasm malignant [Unknown]
  - Appendicectomy [Recovering/Resolving]
  - Crohn^s disease [Unknown]
